FAERS Safety Report 17716704 (Version 1)
Quarter: 2020Q2

REPORT INFORMATION
  Report Type: Spontaneous
  Country: IT (occurrence: IT)
  Receive Date: 20200428
  Receipt Date: 20200428
  Transmission Date: 20200714
  Serious: Yes (Life-Threatening)
  Sender: FDA-Public Use
  Company Number: IT-HIKMA PHARMACEUTICALS USA INC.-IT-H14001-20-51196

PATIENT
  Age: 59 Year
  Sex: Male

DRUGS (3)
  1. REMIFENTANIL AUROBINDO [Concomitant]
     Indication: GENERAL ANAESTHESIA
     Route: 042
     Dates: start: 20200219, end: 20200219
  2. PROPOFOL B.BRAUN [Concomitant]
     Active Substance: PROPOFOL
     Indication: GENERAL ANAESTHESIA
     Route: 065
     Dates: start: 20200219, end: 20200219
  3. ROCURONIO HIKMA [Suspect]
     Active Substance: ROCURONIUM BROMIDE
     Indication: NEUROMUSCULAR BLOCKING THERAPY
     Route: 042
     Dates: start: 20200219, end: 20200219

REACTIONS (2)
  - Drug ineffective [Recovered/Resolved]
  - Premature recovery from anaesthesia [Recovered/Resolved]

NARRATIVE: CASE EVENT DATE: 20200219
